FAERS Safety Report 11410730 (Version 2)
Quarter: 2015Q3

REPORT INFORMATION
  Report Type: Spontaneous
  Country: US (occurrence: US)
  Receive Date: 20150824
  Receipt Date: 20150902
  Transmission Date: 20151125
  Serious: No
  Sender: FDA-Public Use
  Company Number: US-PFIZER INC-2015280720

PATIENT
  Sex: Female

DRUGS (2)
  1. FLAGYL [Suspect]
     Active Substance: METRONIDAZOLE\METRONIDAZOLE HYDROCHLORIDE
     Indication: INFECTION
     Dosage: UNK UNK, DAILY (FOR 14 DAYS)
     Route: 048
     Dates: end: 20150816
  2. CIPRO [Suspect]
     Active Substance: CIPROFLOXACIN HYDROCHLORIDE
     Indication: INFECTION
     Dosage: UNK UNK, DAILY (FOR 14 DAYS)
     Route: 048
     Dates: end: 20150816

REACTIONS (3)
  - Flatulence [Unknown]
  - Dyspepsia [Unknown]
  - Eructation [Unknown]
